FAERS Safety Report 6305221-9 (Version None)
Quarter: 2009Q3

REPORT INFORMATION
  Report Type: 
  Country: None (occurrence: None)
  Receive Date: 20090811
  Receipt Date: 20090804
  Transmission Date: 20100115
  Serious: Yes (Other)
  Sender: FDA-Public Use
  Company Number: JP-AVENTIS-200912210JP

PATIENT
  Age: 85 Year
  Sex: Female
  Weight: 61.3 kg

DRUGS (7)
  1. CLEXANE [Suspect]
     Route: 058
     Dates: start: 20090617, end: 20090619
  2. CLEXANE [Suspect]
     Route: 058
     Dates: start: 20090620, end: 20090622
  3. DIOVANE [Concomitant]
     Indication: HYPERTENSION
     Route: 048
  4. LIVALO [Concomitant]
     Route: 048
  5. SEVEN EP [Concomitant]
     Route: 048
  6. DRAMAMINE                          /00019501/ [Concomitant]
     Route: 048
  7. MAGNESIUM OXIDE [Concomitant]
     Route: 048

REACTIONS (1)
  - HEPATIC FUNCTION ABNORMAL [None]
